FAERS Safety Report 8170634-X (Version None)
Quarter: 2012Q1

REPORT INFORMATION
  Report Type: 
  Country: None (occurrence: None)
  Receive Date: 20120106
  Receipt Date: 20110930
  Transmission Date: 20120608
  Serious: Yes (Other)
  Sender: FDA-Public Use
  Company Number: US-006684

PATIENT
  Age: 53 Year
  Sex: Female
  Weight: 151.8 kg

DRUGS (2)
  1. MULTIHANCE [Suspect]
     Indication: NUCLEAR MAGNETIC RESONANCE IMAGING BRAIN
     Dosage: 20ML ONCE INTRAVENOUS (NOT OTHERWISE SPECIFIED)
     Route: 042
     Dates: start: 20110826, end: 20110826
  2. OXYGEN (OXYGEN) (NI TO NOT CONTINUING) [Concomitant]

REACTIONS (1)
  - DYSPNOEA [None]
